FAERS Safety Report 9768570 (Version 1)
Quarter: 2013Q4

REPORT INFORMATION
  Report Type: Report from Study
  Country: US (occurrence: US)
  Receive Date: 20131218
  Receipt Date: 20131218
  Transmission Date: 20140711
  Serious: Yes (Death)
  Sender: FDA-Public Use
  Company Number: US-ROCHE-1320187

PATIENT
  Age: 70 Year
  Sex: 0

DRUGS (2)
  1. ZELBORAF [Suspect]
     Indication: NON-SMALL CELL LUNG CANCER
     Route: 065
  2. TARCEVA [Suspect]
     Indication: NON-SMALL CELL LUNG CANCER
     Dosage: 2L DOSE: ^100 MG EVERY 3^
     Route: 065

REACTIONS (1)
  - Death [Fatal]
